FAERS Safety Report 4750422-4 (Version None)
Quarter: 2005Q3

REPORT INFORMATION
  Report Type: 
  Country: None (occurrence: None)
  Receive Date: 20050819
  Receipt Date: 20050817
  Transmission Date: 20060218
  Serious: Yes (Hospitalization)
  Sender: FDA-Public Use
  Company Number: URSO 2005-025

PATIENT
  Age: 78 Year
  Sex: Male

DRUGS (42)
  1. URSO TABLETS (URSODESOXYCHOLIC ACID) [Suspect]
     Indication: BILIARY CIRRHOSIS PRIMARY
     Dosage: 600 MG, 1.2 MG, ORAL
     Route: 048
     Dates: start: 20010813, end: 20050707
  2. URSO TABLETS (URSODESOXYCHOLIC ACID) [Suspect]
     Indication: BILIARY CIRRHOSIS PRIMARY
     Dosage: 600 MG, 1.2 MG, ORAL
     Route: 048
     Dates: start: 20050708, end: 20050710
  3. URSO TABLETS (URSODESOXYCHOLIC ACID) [Suspect]
     Indication: BILIARY CIRRHOSIS PRIMARY
     Dosage: 600 MG, 1.2 MG, ORAL
     Route: 048
     Dates: start: 20050711
  4. LACTULOSE [Concomitant]
  5. NIZATIDINE [Concomitant]
  6. ALDACTONE [Concomitant]
  7. MUSCOSOLVAN (AMBROXIL HYDROCHLORIDE) [Concomitant]
  8. TALION (BEPOTASTINE BESIALTE [Concomitant]
  9. TAURINE (AMINOETHYLSULFONIC ACID) [Concomitant]
  10. GLAKAY (MENATETRENONE) [Concomitant]
  11. MEDICON (DEXTROMETHORPHAN HYDROBROMIDE) [Concomitant]
  12. . [Concomitant]
  13. DON (AC-17) (CARGAZOCHROME SODIUM SULFONATE) [Concomitant]
  14. CLARITH (CLARITHROMYCIN) [Concomitant]
  15. AMINOLEBAN EN (NUTRITIONAL SUPPLEMENT FOR HEPATIC  FAILURE) [Concomitant]
  16. LAC B (BIFIDOBACTERIA PREPARATION) [Concomitant]
  17. (ALBUMIN TANNATE) [Concomitant]
  18. GLUCAGON G (GLUCAGON (GENETICAL RECOMBINATION)) [Concomitant]
  19. DIAGNOGREEN (INDICYANINE GREEN) [Concomitant]
  20. (ISOTONIC SODIUM CHLORIDE SOLUTION) [Concomitant]
  21. ATRAX -P (HYDROXYZINE HYDROCHLORIDE) [Concomitant]
  22. ATAQUICK (ATROPINE SULFATE) [Concomitant]
  23. CEFAMEZIN ALPHA (CEFAZOLIN SODIUM) [Concomitant]
  24. SOLDEM 3A (MAINTENANCE SOLUTION) [Concomitant]
  25. PRONASE MS (PRONASE) [Concomitant]
  26. SODIUM BICARBONATE [Concomitant]
  27. DORMICUM (MIDAZOLAM) [Concomitant]
  28. ANEXATE (FLUMAZENIL) [Concomitant]
  29. (THROMBIN) [Concomitant]
  30. PENTAZOCINE LACTATE [Concomitant]
  31. HAPTOGLOBIN (HUMAN HAPTOGLBIN) [Concomitant]
  32. OLDMAIN (MONOETHANOLAMINE OLEATE) [Concomitant]
  33. SAXIZON (HYDROCORTISONE SODIUM SUCCINATE) [Concomitant]
  34. TRANSAMIN (TRANEXAMIC ACID) [Concomitant]
  35. ADONA(AC-17)(CARBAZOCHROME SODIUM SULFOANTE) [Concomitant]
  36. AETHOXYSKLEROL (POLIDOCANOL) [Concomitant]
  37. (THROMBIN) [Concomitant]
  38. ZANTAC [Concomitant]
  39. PANSPORIN (CEFOTIAM HYDROCHLORIDE) [Concomitant]
  40. SUCRALFATE [Concomitant]
  41. ALLOID G (SODIUM ALGINATE) [Concomitant]
  42. FLAVERIC (BENPROPERINE PHOSPHATE) [Concomitant]

REACTIONS (12)
  - BLOOD ALBUMIN DECREASED [None]
  - BLOOD CREATININE INCREASED [None]
  - BRONCHITIS CHRONIC [None]
  - HAEMATOCRIT DECREASED [None]
  - HAEMOGLOBIN DECREASED [None]
  - HEPATIC CIRRHOSIS [None]
  - PLATELET COUNT DECREASED [None]
  - PROTEIN TOTAL INCREASED [None]
  - RED BLOOD CELL COUNT DECREASED [None]
  - URTICARIA [None]
  - VARICES OESOPHAGEAL [None]
  - WHITE BLOOD CELL COUNT DECREASED [None]
